FAERS Safety Report 8726516 (Version 2)
Quarter: 2012Q4

REPORT INFORMATION
  Report Type: 
  Country: ES (occurrence: ES)
  Receive Date: 20120816
  Receipt Date: 20121009
  Transmission Date: 20130627
  Serious: Yes (Other)
  Sender: FDA-Public Use
  Company Number: ES-ASTRAZENECA-2012SE55925

PATIENT
  Age: 4 Year
  Sex: Male
  Weight: 20 kg

DRUGS (3)
  1. RHINOCORT [Suspect]
     Route: 045
     Dates: start: 2012
  2. PARACETAMOL [Suspect]
     Route: 048
     Dates: start: 2011, end: 201203
  3. JOSAMYCIN [Concomitant]
     Route: 048
     Dates: start: 201203, end: 201203

REACTIONS (1)
  - Hepatitis cholestatic [Recovered/Resolved]
